FAERS Safety Report 5956438-4 (Version None)
Quarter: 2008Q4

REPORT INFORMATION
  Report Type: 
  Country: None (occurrence: None)
  Receive Date: 20081114
  Receipt Date: 20081114
  Transmission Date: 20090506
  Serious: Yes (Other)
  Sender: FDA-Public Use
  Company Number: None

PATIENT
  Age: 47 Year
  Sex: Female
  Weight: 81.6475 kg

DRUGS (2)
  1. PROAIR HFA [Suspect]
     Indication: BRONCHIAL HYPERREACTIVITY
     Dosage: PUFF AS NEEDED INHAL
     Route: 055
     Dates: start: 20081108, end: 20081113
  2. PROAIR HFA [Suspect]
     Indication: UPPER RESPIRATORY TRACT INFECTION
     Dosage: PUFF AS NEEDED INHAL
     Route: 055
     Dates: start: 20081108, end: 20081113

REACTIONS (2)
  - DRUG INEFFECTIVE [None]
  - PRODUCT QUALITY ISSUE [None]
